FAERS Safety Report 7536631-X (Version None)
Quarter: 2011Q2

REPORT INFORMATION
  Report Type: 
  Country: None (occurrence: None)
  Receive Date: 20110602
  Receipt Date: 20110519
  Transmission Date: 20111010
  Serious: No
  Sender: FDA-Public Use
  Company Number: B0720235A

PATIENT
  Age: 62 Year
  Sex: Male

DRUGS (3)
  1. ROSIGLITAZONE MALEATE [Suspect]
  2. ATORVASTATIN CALCIUM [Suspect]
  3. FENOFIBRATE [Suspect]

REACTIONS (2)
  - HIGH DENSITY LIPOPROTEIN DECREASED [None]
  - DRUG INTERACTION [None]
